FAERS Safety Report 10438906 (Version 1)
Quarter: 2014Q3

REPORT INFORMATION
  Report Type: Spontaneous
  Country: JP (occurrence: JP)
  Receive Date: 20140908
  Receipt Date: 20140908
  Transmission Date: 20150326
  Serious: No
  Sender: FDA-Public Use
  Company Number: PHHY2014JP113295

PATIENT
  Age: 69 Year
  Sex: Male

DRUGS (7)
  1. TASIGNA [Suspect]
     Active Substance: NILOTINIB
     Dosage: 200 MG, PER DAY
  2. PREDONINE [Concomitant]
     Active Substance: PREDNISOLONE\PREDNISOLONE ACETATE\PREDNISOLONE SODIUM SUCCINATE
     Dosage: UNK
  3. TASIGNA [Suspect]
     Active Substance: NILOTINIB
     Dosage: UNK, DOSE REDUCED
  4. TASIGNA [Suspect]
     Active Substance: NILOTINIB
     Dosage: 200 MG, EVERY SECOND DAY
  5. TASIGNA [Suspect]
     Active Substance: NILOTINIB
     Dosage: 200 MG, UNK
     Dates: start: 20090501
  6. TASIGNA [Suspect]
     Active Substance: NILOTINIB
     Dosage: 200 MG, PER DAY
  7. TASIGNA [Suspect]
     Active Substance: NILOTINIB
     Dosage: 200 MG, UNK

REACTIONS (2)
  - Interstitial lung disease [Unknown]
  - Thrombocytopenia [Unknown]
